FAERS Safety Report 7227753-1 (Version None)
Quarter: 2011Q1

REPORT INFORMATION
  Report Type: 
  Country: None (occurrence: None)
  Receive Date: 20110114
  Receipt Date: 20110106
  Transmission Date: 20110831
  Serious: Yes (Death, Hospitalization)
  Sender: FDA-Public Use
  Company Number: US-JNJFOC-20110101711

PATIENT
  Age: 62 Year
  Sex: Male

DRUGS (2)
  1. ACETAMINOPHEN/DIPHENHYDRAMINE HCL [Suspect]
     Indication: PRODUCT USED FOR UNKNOWN INDICATION
  2. ETHANOL [Suspect]
     Indication: PRODUCT USED FOR UNKNOWN INDICATION

REACTIONS (2)
  - MEDICATION ERROR [None]
  - TOXICITY TO VARIOUS AGENTS [None]
